FAERS Safety Report 4277788-6 (Version None)
Quarter: 2004Q1

REPORT INFORMATION
  Report Type: 
  Country: None (occurrence: None)
  Receive Date: 20040121
  Receipt Date: 20030306
  Transmission Date: 20041129
  Serious: Yes (Hospitalization)
  Sender: FDA-Public Use
  Company Number: 2003-03-0284

PATIENT
  Age: 34 Year
  Sex: Female

DRUGS (4)
  1. SUBUTEX [Suspect]
     Indication: DRUG DEPENDENCE
     Dosage: 4 MG
     Route: 060
     Dates: start: 20010716
  2. ISOXSUPRINE HYDROCHLORIDE [Concomitant]
  3. FERRO-COMPLEX [Concomitant]
  4. FOLIC ACID [Concomitant]

REACTIONS (5)
  - ABORTION SPONTANEOUS [None]
  - COMPLICATIONS OF MATERNAL EXPOSURE TO THERAPEUTIC DRUGS [None]
  - IRON DEFICIENCY ANAEMIA [None]
  - PREGNANCY [None]
  - UTERINE CONTRACTIONS DURING PREGNANCY [None]
